FAERS Safety Report 7338190-3 (Version None)
Quarter: 2011Q1

REPORT INFORMATION
  Report Type: 
  Country: None (occurrence: None)
  Receive Date: 20110308
  Receipt Date: 20110303
  Transmission Date: 20110831
  Serious: Yes (Other)
  Sender: FDA-Public Use
  Company Number: US-ABBOTT-11P-163-0707434-00

PATIENT
  Sex: Female
  Weight: 83.082 kg

DRUGS (3)
  1. HUMIRA [Suspect]
     Dates: start: 20110301
  2. HUMIRA [Suspect]
     Indication: CROHN'S DISEASE
     Dosage: LOADING DOSES (6 DOSES)
     Route: 058
     Dates: start: 20110101, end: 20110101
  3. HUMIRA [Suspect]

REACTIONS (2)
  - ABORTION SPONTANEOUS [None]
  - CROHN'S DISEASE [None]
